FAERS Safety Report 13278180 (Version 2)
Quarter: 2017Q1

REPORT INFORMATION
  Report Type: Spontaneous
  Country: BR (occurrence: BR)
  Receive Date: 20170228
  Receipt Date: 20170310
  Transmission Date: 20170428
  Serious: Yes (Other)
  Sender: FDA-Public Use
  Company Number: ALCN2017BR001546

PATIENT
  Age: 67 Year
  Sex: Female
  Weight: 60 kg

DRUGS (1)
  1. AZOPT [Suspect]
     Active Substance: BRINZOLAMIDE
     Indication: OPEN ANGLE GLAUCOMA
     Dosage: 1 GTT, Q12H
     Route: 047

REACTIONS (3)
  - Intraocular pressure increased [Unknown]
  - Cataract [Unknown]
  - Keloid scar [Unknown]

NARRATIVE: CASE EVENT DATE: 20170217
